FAERS Safety Report 25731125 (Version 2)
Quarter: 2025Q4

REPORT INFORMATION
  Report Type: Spontaneous
  Country: US (occurrence: US)
  Receive Date: 20250827
  Receipt Date: 20251008
  Transmission Date: 20260119
  Serious: Yes (Other)
  Sender: PFIZER
  Company Number: US-PFIZER INC-202500171005

PATIENT
  Age: 78 Year
  Sex: Male

DRUGS (3)
  1. LINEZOLID [Suspect]
     Active Substance: LINEZOLID
     Indication: Mycobacterial infection
     Dosage: UNK
     Dates: end: 20250304
  2. LINEZOLID [Suspect]
     Active Substance: LINEZOLID
     Indication: Medical device site infection
  3. LINEZOLID [Suspect]
     Active Substance: LINEZOLID
     Indication: Arthritis infective

REACTIONS (3)
  - Drug resistance [Unknown]
  - Drug ineffective for unapproved indication [Unknown]
  - Off label use [Unknown]
